FAERS Safety Report 23953104 (Version 3)
Quarter: 2024Q3

REPORT INFORMATION
  Report Type: Report from Study
  Country: US (occurrence: US)
  Receive Date: 20240608
  Receipt Date: 20240902
  Transmission Date: 20241016
  Serious: No
  Sender: SANOFI AVENTIS
  Company Number: US-SA-SAC20240603000188

PATIENT
  Age: 60 Year
  Sex: Female
  Weight: 59.42 kg

DRUGS (16)
  1. DUPILUMAB [Suspect]
     Active Substance: DUPILUMAB
     Indication: Dermatitis atopic
     Dosage: 300 MG, QOW
     Route: 058
  2. DIETARY SUPPLEMENT [Concomitant]
     Active Substance: DIETARY SUPPLEMENT
  3. DIETARY SUPPLEMENT [Concomitant]
     Active Substance: DIETARY SUPPLEMENT
  4. SPIRONOLACTONE [Concomitant]
     Active Substance: SPIRONOLACTONE
     Dosage: UNK
  5. SPIRONOLACTONE [Concomitant]
     Active Substance: SPIRONOLACTONE
  6. FERROUS FUMARATE [Concomitant]
     Active Substance: FERROUS FUMARATE
  7. FERROUS FUMARATE [Concomitant]
     Active Substance: FERROUS FUMARATE
  8. ZETIA [Concomitant]
     Active Substance: EZETIMIBE
  9. ZETIA [Concomitant]
     Active Substance: EZETIMIBE
  10. ATORVASTATIN CALCIUM [Concomitant]
     Active Substance: ATORVASTATIN CALCIUM
  11. ATORVASTATIN CALCIUM [Concomitant]
     Active Substance: ATORVASTATIN CALCIUM
  12. OXTELLAR XR [Concomitant]
     Active Substance: OXCARBAZEPINE
     Dosage: 600 MG, QD
  13. OXTELLAR XR [Concomitant]
     Active Substance: OXCARBAZEPINE
     Dosage: 600 MG, 24 HR
  14. ZONISAMIDE [Concomitant]
     Active Substance: ZONISAMIDE
  15. ZONISAMIDE [Concomitant]
     Active Substance: ZONISAMIDE
  16. VITAMINS NOS [Concomitant]
     Active Substance: VITAMINS

REACTIONS (6)
  - Inflammation [Not Recovered/Not Resolved]
  - Pain [Unknown]
  - Osteoporosis [Unknown]
  - Pruritus [Not Recovered/Not Resolved]
  - Drug ineffective [Not Recovered/Not Resolved]
  - Eosinophil count increased [Unknown]
